FAERS Safety Report 6073552-6 (Version None)
Quarter: 2009Q1

REPORT INFORMATION
  Report Type: 
  Country: None (occurrence: None)
  Receive Date: 20090211
  Receipt Date: 20090209
  Transmission Date: 20090719
  Serious: Yes (Other)
  Sender: FDA-Public Use
  Company Number: IT-BAYER-200913122GPV

PATIENT
  Age: 37 Year
  Sex: Male
  Weight: 78 kg

DRUGS (8)
  1. SORAFENIB [Suspect]
     Indication: RENAL CELL CARCINOMA
     Dosage: TOTAL DAILY DOSE: 800 MG
     Route: 048
     Dates: start: 20081014, end: 20081113
  2. SORAFENIB [Suspect]
     Dosage: TOTAL DAILY DOSE: 1600 MG
     Route: 048
     Dates: start: 20090115, end: 20090204
  3. SORAFENIB [Suspect]
     Dosage: TOTAL DAILY DOSE: 1200 MG
     Route: 048
     Dates: start: 20081114, end: 20090114
  4. NORVASC [Concomitant]
     Indication: HYPERTENSION
     Route: 048
     Dates: start: 20081009, end: 20081031
  5. NORVASC [Concomitant]
     Route: 048
     Dates: start: 20081101
  6. OMEPRAZOLE [Concomitant]
     Indication: PROPHYLAXIS AGAINST GASTROINTESTINAL ULCER
     Route: 048
     Dates: start: 20081014
  7. VALSARTAN [Concomitant]
     Indication: HYPERTENSION
     Route: 048
     Dates: start: 20081101, end: 20090115
  8. VALSARTAN [Concomitant]
     Route: 048
     Dates: start: 20090116

REACTIONS (2)
  - BRUGADA SYNDROME [None]
  - ELECTROCARDIOGRAM ABNORMAL [None]
